FAERS Safety Report 23820225 (Version 2)
Quarter: 2024Q3

REPORT INFORMATION
  Report Type: Spontaneous
  Country: DE (occurrence: DE)
  Receive Date: 20240506
  Receipt Date: 20240722
  Transmission Date: 20241017
  Serious: Yes (Other)
  Sender: BOEHRINGER INGELHEIM
  Company Number: DE-BoehringerIngelheim-2024-BI-025800

PATIENT
  Age: 73 Year
  Sex: Male

DRUGS (8)
  1. OFEV [Suspect]
     Active Substance: NINTEDANIB
     Indication: Pulmonary fibrosis
  2. CLOPIDOGREL [Concomitant]
     Active Substance: CLOPIDOGREL BISULFATE
     Indication: Product used for unknown indication
  3. ASPIRIN [Concomitant]
     Active Substance: ASPIRIN
     Indication: Product used for unknown indication
  4. ROSUVASTATIN [Concomitant]
     Active Substance: ROSUVASTATIN
     Indication: Product used for unknown indication
  5. ACETYLCYSTEINE [Concomitant]
     Active Substance: ACETYLCYSTEINE
     Indication: Product used for unknown indication
  6. ORGOVYX [Concomitant]
     Active Substance: RELUGOLIX
     Indication: Product used for unknown indication
     Dates: start: 202406
  7. ERLEADA [Concomitant]
     Active Substance: APALUTAMIDE
     Indication: Product used for unknown indication
     Dates: start: 202406
  8. L-Thyrox 87.5 [Concomitant]
     Indication: Product used for unknown indication

REACTIONS (3)
  - Metastases to lymph nodes [Unknown]
  - Metastases to bone [Unknown]
  - Prostate cancer [Unknown]

NARRATIVE: CASE EVENT DATE: 20240601
